FAERS Safety Report 4615928-7 (Version None)
Quarter: 2005Q1

REPORT INFORMATION
  Report Type: 
  Country: None (occurrence: None)
  Receive Date: 20050318
  Receipt Date: 20050307
  Transmission Date: 20050727
  Serious: Yes (Congenital Anomaly)
  Sender: FDA-Public Use
  Company Number: 2005042138

PATIENT

DRUGS (1)
  1. ATORVASTATIN CALCIUM [Suspect]
     Indication: ILL-DEFINED DISORDER
     Route: 064

REACTIONS (2)
  - DRUG EXPOSURE DURING PREGNANCY [None]
  - LIMB REDUCTION DEFECT [None]
